FAERS Safety Report 17008075 (Version 1)
Quarter: 2019Q4

REPORT INFORMATION
  Report Type: Spontaneous
  Country: US (occurrence: US)
  Receive Date: 20191108
  Receipt Date: 20191108
  Transmission Date: 20200122
  Serious: No
  Sender: FDA-Public Use
  Company Number: US-UNITED THERAPEUTICS-UNT-2019-017036

PATIENT
  Sex: Female
  Weight: 83.45 kg

DRUGS (2)
  1. REMODULIN [Suspect]
     Active Substance: TREPROSTINIL
     Indication: PULMONARY ARTERIAL HYPERTENSION
     Dosage: 0.060 ?G/KG, CONTINUING
     Route: 058
  2. OPSUMIT [Concomitant]
     Active Substance: MACITENTAN
     Indication: PRODUCT USED FOR UNKNOWN INDICATION
     Dosage: UNK
     Route: 065

REACTIONS (7)
  - Dermatitis contact [Unknown]
  - Device dislocation [Unknown]
  - Headache [Unknown]
  - Infusion site swelling [Unknown]
  - Administration site odour [Unknown]
  - Infusion site discharge [Unknown]
  - Infusion site vesicles [Unknown]

NARRATIVE: CASE EVENT DATE: 2019
